FAERS Safety Report 4274073-3 (Version None)
Quarter: 2004Q1

REPORT INFORMATION
  Report Type: 
  Country: None (occurrence: None)
  Receive Date: 20040115
  Receipt Date: 20040106
  Transmission Date: 20041129
  Serious: Yes (Hospitalization)
  Sender: FDA-Public Use
  Company Number: FR-JNJFOC-20040101029

PATIENT
  Age: 39 Year
  Sex: Male

DRUGS (3)
  1. RISPERDAL [Suspect]
     Indication: PSYCHOTIC DISORDER
     Dosage: 6 MG, IN 1 DAY, ORAL
     Route: 048
     Dates: end: 20031202
  2. TERCIAN (CYAMEMAZINE) TABLETS [Suspect]
     Indication: PSYCHOTIC DISORDER
     Dosage: 25 MG, 2 IN 1 DAY, ORAL
     Route: 048
     Dates: end: 20031202
  3. DEPAKENE [Concomitant]

REACTIONS (5)
  - ALANINE AMINOTRANSFERASE INCREASED [None]
  - ASPARTATE AMINOTRANSFERASE INCREASED [None]
  - BLOOD CREATINE PHOSPHOKINASE INCREASED [None]
  - DRUG INTERACTION [None]
  - HYPERTHERMIA [None]
